FAERS Safety Report 6119906-0 (Version None)
Quarter: 2009Q1

REPORT INFORMATION
  Report Type: 
  Country: None (occurrence: None)
  Receive Date: 20090316
  Receipt Date: 20090311
  Transmission Date: 20090719
  Serious: Yes (Other)
  Sender: FDA-Public Use
  Company Number: US-ASTRAZENECA-2008UW25905

PATIENT
  Age: 39 Year
  Sex: Female
  Weight: 69.9 kg

DRUGS (7)
  1. SEROQUEL [Suspect]
     Indication: BIPOLAR DISORDER
     Route: 048
     Dates: start: 20061127
  2. SEROQUEL [Suspect]
     Indication: ANXIETY
     Route: 048
     Dates: start: 20061127
  3. SEROQUEL [Suspect]
     Indication: DEPRESSION
     Route: 048
     Dates: start: 20061127
  4. ABILIFY [Concomitant]
     Dates: start: 20040101
  5. NAVANE [Concomitant]
     Dates: start: 20030101
  6. LITHIUM CARBONATE [Concomitant]
     Dates: start: 20050101
  7. EFFEXOR [Concomitant]
     Dosage: 450 AND 150 MG

REACTIONS (5)
  - ASTHMA [None]
  - DIABETES MELLITUS [None]
  - GALLBLADDER OPERATION [None]
  - NEUROPATHY PERIPHERAL [None]
  - OBESITY [None]
